FAERS Safety Report 14336225 (Version 1)
Quarter: 2017Q4

REPORT INFORMATION
  Report Type: Spontaneous
  Country: US (occurrence: US)
  Receive Date: 20171229
  Receipt Date: 20171229
  Transmission Date: 20180321
  Serious: Yes (Other)
  Sender: FDA-Public Use
  Company Number: US-ASTELLAS-2017US055985

PATIENT
  Age: 53 Year
  Sex: Female

DRUGS (5)
  1. SIROLIMUS. [Suspect]
     Active Substance: SIROLIMUS
     Indication: PANCREAS TRANSPLANT
     Dosage: UNK UNK, UNKNOWN FREQ. (GOAL TROUGH LEVEL, 3-5 NG/ML)
     Route: 065
  2. MYCOPHENOLATE MOFETIL. [Suspect]
     Active Substance: MYCOPHENOLATE MOFETIL
     Indication: PANCREAS TRANSPLANT
     Dosage: UNK UNK, UNKNOWN FREQ.
     Route: 065
  3. ANTITHYMOCYTE IMMUNOGLOBULIN (RABBIT) [Concomitant]
     Active Substance: LAPINE T-LYMPHOCYTE IMMUNE GLOBULIN
     Indication: PANCREAS TRANSPLANT
     Route: 065
  4. TACROLIMUS. [Suspect]
     Active Substance: TACROLIMUS
     Indication: PANCREAS TRANSPLANT
     Dosage: UNK UNK, UNKNOWN FREQ. (GOAL TROUGH LEVEL, 7-8 NG/ML)
     Route: 048
  5. SIROLIMUS. [Suspect]
     Active Substance: SIROLIMUS
     Dosage: 0.5 MG, ONCE DAILY
     Route: 065

REACTIONS (4)
  - Chronic kidney disease [Unknown]
  - Toxicity to various agents [Unknown]
  - Polyomavirus-associated nephropathy [Unknown]
  - Off label use [Unknown]
